FAERS Safety Report 15409294 (Version 1)
Quarter: 2018Q3

REPORT INFORMATION
  Report Type: Other
  Country: US (occurrence: US)
  Receive Date: 20180920
  Receipt Date: 20180920
  Transmission Date: 20181010
  Serious: Yes (Hospitalization)
  Sender: FDA-Public Use
  Company Number: US-LEADIANT BIOSCIENCES INC-2018STPI000182

PATIENT
  Sex: Male

DRUGS (3)
  1. LEUCOVORIN                         /00566701/ [Concomitant]
     Active Substance: LEUCOVORIN
  2. MATULANE [Suspect]
     Active Substance: PROCARBAZINE HYDROCHLORIDE
     Indication: NON-HODGKIN^S LYMPHOMA
     Dosage: 250 MG, QHS X 7 DAYS
     Route: 048
     Dates: start: 20180303
  3. LOTEMAX [Concomitant]
     Active Substance: LOTEPREDNOL ETABONATE

REACTIONS (1)
  - Ill-defined disorder [Unknown]
